FAERS Safety Report 19272274 (Version 2)
Quarter: 2021Q2

REPORT INFORMATION
  Report Type: Spontaneous
  Country: BR (occurrence: BR)
  Receive Date: 20210518
  Receipt Date: 20210519
  Transmission Date: 20210717
  Serious: Yes (Life-Threatening, Other)
  Sender: FDA-Public Use
  Company Number: BR-ELI_LILLY_AND_COMPANY-BR202105004514

PATIENT
  Sex: Male

DRUGS (1)
  1. OLUMIANT [Suspect]
     Active Substance: BARICITINIB
     Indication: COVID-19
     Dosage: UNK UNK, UNKNOWN
     Route: 065

REACTIONS (2)
  - Arrhythmia [Unknown]
  - Off label use [Unknown]
